FAERS Safety Report 23207516 (Version 2)
Quarter: 2023Q4

REPORT INFORMATION
  Report Type: Report from Study
  Country: CA (occurrence: CA)
  Receive Date: 20231120
  Receipt Date: 20231205
  Transmission Date: 20240110
  Serious: Yes (Hospitalization)
  Sender: FDA-Public Use
  Company Number: CA-SEATTLE GENETICS-2023SGN12207

PATIENT
  Age: 74 Year
  Sex: Female
  Weight: 61.1 kg

DRUGS (6)
  1. BRENTUXIMAB VEDOTIN [Suspect]
     Active Substance: BRENTUXIMAB VEDOTIN
     Indication: Diffuse large B-cell lymphoma refractory
     Dosage: 1.2 MG/KG, ON DAY 1 OF EACH 21-DAY CYCLE
     Route: 042
     Dates: start: 20230711, end: 20231024
  2. RITUXIMAB [Suspect]
     Active Substance: RITUXIMAB
     Indication: Diffuse large B-cell lymphoma refractory
     Dosage: 1400 MG, Q3WEEKS
     Route: 058
     Dates: start: 20230711, end: 20231024
  3. LENALIDOMIDE [Suspect]
     Active Substance: LENALIDOMIDE
     Indication: Diffuse large B-cell lymphoma refractory
     Dosage: 0 MG, QD
     Route: 048
     Dates: start: 20230711, end: 20231030
  4. ACYCLOVIR [Concomitant]
     Active Substance: ACYCLOVIR
     Indication: Prophylaxis
     Dosage: 800 MG, BID
     Route: 048
     Dates: start: 20230306
  5. VITAMIN D NOS [Concomitant]
     Active Substance: VITAMIN D NOS
     Indication: Supplementation therapy
     Dosage: 1000 IU, QD
     Route: 048
     Dates: start: 2021
  6. ASPIRIN [Concomitant]
     Active Substance: ASPIRIN
     Indication: Prophylaxis
     Dosage: 81 MG, QD
     Route: 048
     Dates: start: 20230711

REACTIONS (1)
  - Pneumonitis [Recovering/Resolving]

NARRATIVE: CASE EVENT DATE: 20231115
